FAERS Safety Report 6864451-8 (Version None)
Quarter: 2010Q3

REPORT INFORMATION
  Report Type: 
  Country: None (occurrence: None)
  Receive Date: 20100721
  Receipt Date: 20080324
  Transmission Date: 20110219
  Serious: No
  Sender: FDA-Public Use
  Company Number: US-PFIZER INC-2008028021

PATIENT
  Sex: Female

DRUGS (5)
  1. CHANTIX [Suspect]
     Indication: SMOKING CESSATION THERAPY
     Dates: start: 20080101
  2. BENICAR [Concomitant]
     Indication: BLOOD PRESSURE ABNORMAL
  3. TYLENOL (CAPLET) [Concomitant]
     Indication: ARTHRITIS
  4. HYDROCHLOROTHIAZIDE [Concomitant]
  5. ACETYLSALICYLIC ACID [Concomitant]

REACTIONS (2)
  - JOINT LOCK [None]
  - PAIN IN EXTREMITY [None]
